FAERS Safety Report 23572764 (Version 2)
Quarter: 2024Q2

REPORT INFORMATION
  Report Type: Spontaneous
  Country: FR (occurrence: FR)
  Receive Date: 20240227
  Receipt Date: 20240626
  Transmission Date: 20240716
  Serious: Yes (Other)
  Sender: FDA-Public Use
  Company Number: None

PATIENT
  Age: 53 Year
  Sex: Female

DRUGS (2)
  1. KEYTRUDA [Suspect]
     Active Substance: PEMBROLIZUMAB
     Indication: Triple negative breast cancer
     Dosage: 1 DOSAGE FORM
     Route: 042
     Dates: start: 20230420
  2. EPIRUBICIN [Suspect]
     Active Substance: EPIRUBICIN
     Indication: Triple negative breast cancer
     Dosage: 1 DOSAGE FORM
     Route: 042
     Dates: start: 202307

REACTIONS (2)
  - Troponin increased [Recovered/Resolved]
  - Immune-mediated pericarditis [Recovered/Resolved]

NARRATIVE: CASE EVENT DATE: 20231023
